FAERS Safety Report 16683141 (Version 1)
Quarter: 2019Q3

REPORT INFORMATION
  Report Type: Spontaneous
  Country: US (occurrence: US)
  Receive Date: 20190807
  Receipt Date: 20190807
  Transmission Date: 20191004
  Serious: Yes (Hospitalization)
  Sender: FDA-Public Use
  Company Number: None

PATIENT
  Sex: Female

DRUGS (14)
  1. REPATHA [Suspect]
     Active Substance: EVOLOCUMAB
     Indication: TYPE V HYPERLIPIDAEMIA
     Dates: start: 20181017
  2. DILTIAZEM. [Concomitant]
     Active Substance: DILTIAZEM
  3. ISOSORB MONO [Concomitant]
     Active Substance: ISOSORBIDE MONONITRATE
  4. ALPRAZOLAM. [Concomitant]
     Active Substance: ALPRAZOLAM
  5. BRILLIAN POW GREEN [Concomitant]
  6. PANTOPRAZOLE [Concomitant]
     Active Substance: PANTOPRAZOLE
  7. ALLEGRA [Concomitant]
     Active Substance: FEXOFENADINE HYDROCHLORIDE
  8. TOPIRAMATE. [Concomitant]
     Active Substance: TOPIRAMATE
  9. TELMISA/HCTZ [Concomitant]
  10. RANOLAZINE. [Concomitant]
     Active Substance: RANOLAZINE
  11. NITROGLYCERN [Concomitant]
  12. RANEXA [Concomitant]
     Active Substance: RANOLAZINE
  13. METHYLPHENID [Concomitant]
     Active Substance: METHYLPHENIDATE
  14. FLUOXETINE [Concomitant]
     Active Substance: FLUOXETINE HYDROCHLORIDE

REACTIONS (2)
  - Pain in extremity [None]
  - Irritability [None]
